FAERS Safety Report 9664017 (Version 1)
Quarter: 2013Q4

REPORT INFORMATION
  Report Type: Spontaneous
  Country: US (occurrence: None)
  Receive Date: 20131030
  Receipt Date: 20131030
  Transmission Date: 20140711
  Serious: No
  Sender: FDA-Public Use
  Company Number: None

PATIENT
  Age: 35 Year
  Sex: Female
  Weight: 115.67 kg

DRUGS (1)
  1. CHANTIX 0.5MG 1MG, PFIZER [Suspect]
     Indication: SMOKING CESSATION THERAPY
     Dosage: 1 PILL TWICE DAILY TAKEN BY MOUTH
     Route: 048
     Dates: start: 20131016, end: 20131028

REACTIONS (3)
  - Self injurious behaviour [None]
  - Suicidal ideation [None]
  - Intentional self-injury [None]
